FAERS Safety Report 12623565 (Version 5)
Quarter: 2018Q2

REPORT INFORMATION
  Report Type: Spontaneous
  Country: US (occurrence: US)
  Receive Date: 20160804
  Receipt Date: 20180606
  Transmission Date: 20180711
  Serious: No
  Sender: FDA-Public Use
  Company Number: US-ACTELION-A-US2016-140281

PATIENT
  Age: 43 Year
  Sex: Female

DRUGS (10)
  1. UPTRAVI [Suspect]
     Active Substance: SELEXIPAG
     Dosage: 600 MCG, BID
     Route: 048
     Dates: start: 20160706
  2. METOLAZONE. [Concomitant]
     Active Substance: METOLAZONE
  3. DIGOXIN. [Concomitant]
     Active Substance: DIGOXIN
  4. LASIX [Concomitant]
     Active Substance: FUROSEMIDE
  5. UPTRAVI [Suspect]
     Active Substance: SELEXIPAG
     Indication: PULMONARY ARTERIAL HYPERTENSION
     Dosage: 1400 MCG, BID
     Route: 048
  6. SPIRONOLACTONE. [Concomitant]
     Active Substance: SPIRONOLACTONE
  7. ADCIRCA [Concomitant]
     Active Substance: TADALAFIL
  8. TRACLEER [Suspect]
     Active Substance: BOSENTAN
     Indication: PULMONARY ARTERIAL HYPERTENSION
     Dosage: 125 MG, BID
     Route: 048
     Dates: start: 20121219
  9. UPTRAVI [Suspect]
     Active Substance: SELEXIPAG
     Dosage: 800 MCG, BID
     Route: 048
  10. POTASSIUM [Concomitant]
     Active Substance: POTASSIUM

REACTIONS (8)
  - Pain in extremity [Unknown]
  - Fluid retention [Recovered/Resolved]
  - Myalgia [Not Recovered/Not Resolved]
  - Drug dose omission [Unknown]
  - Abdominal pain upper [Unknown]
  - Headache [Unknown]
  - Nausea [Not Recovered/Not Resolved]
  - Flushing [Not Recovered/Not Resolved]

NARRATIVE: CASE EVENT DATE: 20160724
